FAERS Safety Report 6046552-X (Version None)
Quarter: 2009Q1

REPORT INFORMATION
  Report Type: 
  Country: None (occurrence: None)
  Receive Date: 20090122
  Receipt Date: 20090112
  Transmission Date: 20090719
  Serious: Yes (Hospitalization)
  Sender: FDA-Public Use
  Company Number: PHHY2008GB29856

PATIENT

DRUGS (8)
  1. CLOZARIL [Suspect]
     Indication: SCHIZOPHRENIA
     Dosage: 400 MG, QD
     Route: 048
     Dates: start: 19991004
  2. CLOZARIL [Suspect]
     Dosage: 450 MG DAILY
  3. LEVOTHYROXINE SODIUM [Concomitant]
     Dosage: 200 UG, QD
     Route: 048
  4. OLANZAPINE [Concomitant]
     Dosage: 10 MG NOCTE
     Route: 048
  5. ACETAMINOPHEN [Concomitant]
     Dosage: 1 G, QDS
  6. TRAMADOL HCL [Concomitant]
     Dosage: 50 - 100 MG, QDS
  7. METOCLOPRAMIDE [Concomitant]
     Dosage: 10 MG, TID
  8. LACTULOSE [Concomitant]
     Dosage: 10 ML, BID

REACTIONS (10)
  - ABDOMINAL DISTENSION [None]
  - ABDOMINAL PAIN LOWER [None]
  - ABDOMINAL TENDERNESS [None]
  - COLECTOMY [None]
  - CONSTIPATION [None]
  - GASTROINTESTINAL SURGERY [None]
  - INTESTINAL OBSTRUCTION [None]
  - LAPAROTOMY [None]
  - PERIDIVERTICULAR ABSCESS [None]
  - VOMITING [None]
